FAERS Safety Report 9312045 (Version 1)
Quarter: 2013Q2

REPORT INFORMATION
  Report Type: Spontaneous
  Country: JP (occurrence: JP)
  Receive Date: 20130528
  Receipt Date: 20130528
  Transmission Date: 20140414
  Serious: Yes (Other)
  Sender: FDA-Public Use
  Company Number: JP-PFIZER INC-2013157966

PATIENT
  Age: 63 Year
  Sex: Female

DRUGS (3)
  1. DEXAMETHASONE SODIUM PHOSPHATE [Suspect]
     Indication: PLASMA CELL MYELOMA
     Dosage: 40 MG/DAY
  2. ADRIAMYCIN [Suspect]
     Indication: PLASMA CELL MYELOMA
     Dosage: 15 MG/DAY
  3. VINCRISTINE [Suspect]
     Indication: PLASMA CELL MYELOMA
     Dosage: 0.4 MG/DAY
     Route: 042

REACTIONS (1)
  - Tumour lysis syndrome [Recovered/Resolved]
